FAERS Safety Report 10623328 (Version 1)
Quarter: 2014Q4

REPORT INFORMATION
  Report Type: Spontaneous
  Country: IN (occurrence: IN)
  Receive Date: 20141203
  Receipt Date: 20141203
  Transmission Date: 20150529
  Serious: Yes (Death, Hospitalization)
  Sender: FDA-Public Use
  Company Number: IN-MYLANLABS-2014M1012260

PATIENT

DRUGS (2)
  1. CARBIDOPA,LEVODOPA [Suspect]
     Active Substance: CARBIDOPA\LEVODOPA
     Indication: DEMENTIA WITH LEWY BODIES
     Dosage: 100/25 MG HALF TABLET TWICE DAILY
     Route: 065
  2. RIVASTIGMINE [Concomitant]
     Active Substance: RIVASTIGMINE
     Indication: DEMENTIA WITH LEWY BODIES
     Route: 065

REACTIONS (6)
  - Tachypnoea [None]
  - Tremor [None]
  - Pyrexia [None]
  - Serotonin syndrome [Fatal]
  - Cardiac arrest [Fatal]
  - Stupor [None]
